FAERS Safety Report 6113245-X (Version None)
Quarter: 2009Q1

REPORT INFORMATION
  Report Type: 
  Country: None (occurrence: None)
  Receive Date: 20090312
  Receipt Date: 20090302
  Transmission Date: 20090719
  Serious: Yes (Other)
  Sender: FDA-Public Use
  Company Number: CA-ELI_LILLY_AND_COMPANY-CA200903000962

PATIENT
  Age: 67 Year
  Sex: Female

DRUGS (11)
  1. FORTEO [Suspect]
     Indication: OSTEOPOROSIS
     Dosage: 20 UG, DAILY (1/D)
     Route: 058
     Dates: start: 20080926
  2. PREDNISONE [Concomitant]
  3. NEXIUM [Concomitant]
  4. APO-K [Concomitant]
  5. DILTIAZEM [Concomitant]
  6. LANOXIN [Concomitant]
  7. FUROSEMIDE [Concomitant]
  8. SPIRIVA [Concomitant]
  9. DICETEL [Concomitant]
  10. NITRO                              /00003201/ [Concomitant]
  11. SYNTHROID [Concomitant]

REACTIONS (4)
  - MALAISE [None]
  - OEDEMA PERIPHERAL [None]
  - OESOPHAGEAL DISORDER [None]
  - WHEEZING [None]
